FAERS Safety Report 14092354 (Version 1)
Quarter: 2017Q4

REPORT INFORMATION
  Report Type: Spontaneous
  Country: DK (occurrence: DK)
  Receive Date: 20171016
  Receipt Date: 20171016
  Transmission Date: 20180321
  Serious: Yes (Other)
  Sender: FDA-Public Use
  Company Number: DK-TEVA-812826ACC

PATIENT
  Age: 25 Year
  Sex: Female

DRUGS (1)
  1. TRAMADOL ACTAVIS [Suspect]
     Active Substance: TRAMADOL
     Indication: MYALGIA
     Dosage: DOSAGE: UP TO 10-20 TABLETS DAILY, STRENGHT: ALL STRENGTHS.
     Route: 048
     Dates: start: 20080101, end: 20170907

REACTIONS (3)
  - Dependence [Recovered/Resolved]
  - Intentional product misuse [Recovered/Resolved]
  - Withdrawal syndrome [Recovered/Resolved]

NARRATIVE: CASE EVENT DATE: 20080302
